FAERS Safety Report 15631880 (Version 2)
Quarter: 2018Q4

REPORT INFORMATION
  Report Type: Spontaneous
  Country: US (occurrence: US)
  Receive Date: 20181119
  Receipt Date: 20181219
  Transmission Date: 20190205
  Serious: No
  Sender: FDA-Public Use
  Company Number: US-GLAXOSMITHKLINE-US2018202090

PATIENT
  Age: 65 Year
  Sex: Female
  Weight: 137.41 kg

DRUGS (1)
  1. ADVAIR DISKUS [Suspect]
     Active Substance: FLUTICASONE PROPIONATE\SALMETEROL XINAFOATE
     Indication: ASTHMA
     Dosage: UNK
     Dates: start: 20181103

REACTIONS (6)
  - Genital erythema [Unknown]
  - Genital tract inflammation [Not Recovered/Not Resolved]
  - Lip swelling [Unknown]
  - Burning sensation [Unknown]
  - Erythema [Not Recovered/Not Resolved]
  - Inflammation [Unknown]

NARRATIVE: CASE EVENT DATE: 20181105
